FAERS Safety Report 8082073-0 (Version None)
Quarter: 2012Q1

REPORT INFORMATION
  Report Type: 
  Country: None (occurrence: None)
  Receive Date: 20120127
  Receipt Date: 20110224
  Transmission Date: 20120608
  Serious: No
  Sender: FDA-Public Use
  Company Number: US-ABBOTT-11P-163-0707778-00

PATIENT
  Sex: Female
  Weight: 95.34 kg

DRUGS (15)
  1. METOPROLOL TARTRATE [Concomitant]
     Indication: HYPERTENSION
  2. ASPIRIN [Concomitant]
     Indication: CARDIAC MURMUR
  3. LOVASTATIN [Concomitant]
     Indication: BLOOD CHOLESTEROL INCREASED
  4. METHOTREXATE [Concomitant]
     Indication: RHEUMATOID ARTHRITIS
  5. HYLAND'S [Concomitant]
     Indication: DYSKINESIA
  6. ESTRADIOL [Concomitant]
     Indication: MENOPAUSE
  7. HUMIRA [Suspect]
     Indication: RHEUMATOID ARTHRITIS
     Dates: start: 20060101, end: 20101201
  8. FOLIC ACID [Concomitant]
     Indication: PRODUCT USED FOR UNKNOWN INDICATION
  9. NEXIUM [Concomitant]
     Indication: DYSPHAGIA
  10. CALCIUM WITH VITAMIN D [Concomitant]
     Indication: PRODUCT USED FOR UNKNOWN INDICATION
  11. ACETAMINOPHEN [Concomitant]
     Indication: PAIN IN EXTREMITY
  12. HYLAND'S [Concomitant]
     Indication: MYALGIA
  13. OMEPRAZOLE [Concomitant]
     Indication: DYSPHAGIA
  14. HYLAND'S [Concomitant]
     Indication: MUSCLE SPASMS
  15. NASONEX [Concomitant]
     Indication: HYPERSENSITIVITY

REACTIONS (2)
  - MOBILITY DECREASED [None]
  - PAIN IN EXTREMITY [None]
